FAERS Safety Report 10057933 (Version 1)
Quarter: 2014Q2

REPORT INFORMATION
  Report Type: Spontaneous
  Country: US (occurrence: None)
  Receive Date: 20140403
  Receipt Date: 20140403
  Transmission Date: 20141212
  Serious: Yes (Other)
  Sender: FDA-Public Use
  Company Number: None

PATIENT
  Sex: Female

DRUGS (1)
  1. HUMIRA [Suspect]
     Indication: GASTROINTESTINAL DISORDER
     Route: 058
     Dates: start: 20130326

REACTIONS (2)
  - Product quality issue [None]
  - Injection site reaction [None]
